FAERS Safety Report 10607854 (Version 4)
Quarter: 2016Q1

REPORT INFORMATION
  Report Type: Spontaneous
  Country: US (occurrence: US)
  Receive Date: 20141125
  Receipt Date: 20160119
  Transmission Date: 20160525
  Serious: Yes (Life-Threatening, Hospitalization)
  Sender: FDA-Public Use
  Company Number: US-PFIZER INC-2014320844

PATIENT
  Age: 53 Year
  Sex: Male
  Weight: 75 kg

DRUGS (2)
  1. LIPITOR [Suspect]
     Active Substance: ATORVASTATIN CALCIUM
     Indication: BLOOD CHOLESTEROL
     Dosage: UNK
     Dates: start: 201508, end: 201509
  2. LIPITOR [Suspect]
     Active Substance: ATORVASTATIN CALCIUM
     Indication: MYOCARDIAL INFARCTION
     Dosage: 40 MG, UNK
     Dates: start: 2002, end: 2014

REACTIONS (6)
  - Condition aggravated [Unknown]
  - Nerve injury [Not Recovered/Not Resolved]
  - Insomnia [Unknown]
  - Myocardial infarction [Recovering/Resolving]
  - Pain in extremity [Recovering/Resolving]
  - Drug ineffective [Unknown]

NARRATIVE: CASE EVENT DATE: 2008
